FAERS Safety Report 10824682 (Version 1)
Quarter: 2015Q1

REPORT INFORMATION
  Report Type: Spontaneous
  Country: US (occurrence: None)
  Receive Date: 20150213
  Receipt Date: 20150213
  Transmission Date: 20150721
  Serious: Yes (Other)
  Sender: FDA-Public Use
  Company Number: 2014BI093800

PATIENT
  Age: 62 Year
  Sex: Female

DRUGS (1)
  1. TYSABRI [Suspect]
     Active Substance: NATALIZUMAB
     Indication: MULTIPLE SCLEROSIS
     Route: 042
     Dates: start: 20121011

REACTIONS (6)
  - Lower respiratory tract infection [None]
  - Renal cancer recurrent [None]
  - Sinusitis [None]
  - Fatigue [None]
  - Nasal congestion [None]
  - Pain in extremity [None]

NARRATIVE: CASE EVENT DATE: 201409
